FAERS Safety Report 8741968 (Version 2)
Quarter: 2013Q1

REPORT INFORMATION
  Report Type: Spontaneous
  Country: AT (occurrence: AT)
  Receive Date: 20120824
  Receipt Date: 20130219
  Transmission Date: 20140127
  Serious: Yes (Other)
  Sender: FDA-Public Use
  Company Number: AT-JNJFOC-20120808003

PATIENT
  Age: 44 None
  Sex: Male
  Weight: 98 kg

DRUGS (3)
  1. STELARA [Suspect]
     Indication: PRODUCT USED FOR UNKNOWN INDICATION
     Route: 058
     Dates: start: 20120803
  2. STELARA [Suspect]
     Indication: PRODUCT USED FOR UNKNOWN INDICATION
     Route: 058
     Dates: start: 20120705
  3. STELARA [Suspect]
     Indication: PRODUCT USED FOR UNKNOWN INDICATION
     Route: 058
     Dates: start: 20121024

REACTIONS (8)
  - Lymphopenia [Recovered/Resolved]
  - Arthropathy [Unknown]
  - Condition aggravated [Not Recovered/Not Resolved]
  - Respiratory tract infection [Unknown]
  - Bronchitis [Unknown]
  - Leukocytosis [Recovered/Resolved]
  - Cough [Recovered/Resolved]
  - Infection [Recovered/Resolved]
